FAERS Safety Report 12605367 (Version 1)
Quarter: 2016Q3

REPORT INFORMATION
  Report Type: Spontaneous
  Country: US (occurrence: US)
  Receive Date: 20160729
  Receipt Date: 20160729
  Transmission Date: 20161109
  Serious: No
  Sender: FDA-Public Use
  Company Number: US-TEVA-628020USA

PATIENT
  Sex: Male

DRUGS (2)
  1. FLECTOR [Concomitant]
     Active Substance: DICLOFENAC EPOLAMINE
     Indication: BACK PAIN
     Route: 062
  2. FLUCONAZOLE. [Suspect]
     Active Substance: FLUCONAZOLE

REACTIONS (1)
  - Malaise [Unknown]
